FAERS Safety Report 12831434 (Version 2)
Quarter: 2016Q4

REPORT INFORMATION
  Report Type: Report from Study
  Country: None (occurrence: BE)
  Receive Date: 20161008
  Receipt Date: 20161104
  Transmission Date: 20170207
  Serious: Yes (Hospitalization)
  Sender: FDA-Public Use
  Company Number: BE-ABBVIE-15P-013-1488371-00

PATIENT
  Age: 62 Year
  Sex: Male

DRUGS (12)
  1. REQUIP [Concomitant]
     Active Substance: ROPINIROLE HYDROCHLORIDE
     Indication: PARKINSON^S DISEASE
     Dosage: 2 TABLETS OF 8MG AND 1 TABLET OF 2MG
     Route: 048
  2. REQUIP [Concomitant]
     Active Substance: ROPINIROLE HYDROCHLORIDE
  3. REQUIP [Concomitant]
     Active Substance: ROPINIROLE HYDROCHLORIDE
  4. DUODOPA [Suspect]
     Active Substance: CARBIDOPA\LEVODOPA
     Indication: PARKINSON^S DISEASE
     Dosage: AM=0ML; CD=5.3ML/H DURING 16HRS; ED=3ML
     Route: 050
     Dates: start: 20120813, end: 20120815
  5. DUODOPA [Suspect]
     Active Substance: CARBIDOPA\LEVODOPA
     Dosage: DOSES CONTINUOUSLY MONITORED AND ADAPTED.
     Route: 050
     Dates: start: 20120815, end: 20151019
  6. STALEVO [Concomitant]
     Active Substance: CARBIDOPA\ENTACAPONE\LEVODOPA
     Dosage: FORM STRENGTH: 150MG/37.5MG/200MG
  7. STALEVO [Concomitant]
     Active Substance: CARBIDOPA\ENTACAPONE\LEVODOPA
     Dosage: FORM STRENGTH: 150MG/37.5MG/200MG
  8. DUODOPA [Suspect]
     Active Substance: CARBIDOPA\LEVODOPA
     Dosage: AM= 3 ML; CD= 2.4 ML/H DURING 16 HRS; ED= 1.5 ML
     Route: 050
     Dates: start: 20161006
  9. STALEVO [Concomitant]
     Active Substance: CARBIDOPA\ENTACAPONE\LEVODOPA
     Indication: PARKINSON^S DISEASE
     Dosage: FORM STRENGTH: 150MG/37.5MG/200MG
     Route: 048
  10. DUODOPA [Suspect]
     Active Substance: CARBIDOPA\LEVODOPA
     Dosage: AM=2ML; CD=2.4ML/H DURING 16HRS; ED=2.5ML
     Route: 050
     Dates: start: 20151019, end: 20151116
  11. DUODOPA [Suspect]
     Active Substance: CARBIDOPA\LEVODOPA
     Dosage: AM DOSE=2ML, CD=2.5ML/H FOR 16HRS, ED=2.5ML
     Route: 050
     Dates: start: 20151116, end: 20161006
  12. REQUIP [Concomitant]
     Active Substance: ROPINIROLE HYDROCHLORIDE
     Dosage: 1TABLET IN THE MORNING, 2 TABLETS BEFORE SLEEP

REACTIONS (17)
  - Muscle rigidity [Unknown]
  - Stoma site infection [Unknown]
  - On and off phenomenon [Unknown]
  - Stoma site hypergranulation [Unknown]
  - Device dislocation [Unknown]
  - Muscle rupture [Unknown]
  - On and off phenomenon [Not Recovered/Not Resolved]
  - Stoma site discharge [Not Recovered/Not Resolved]
  - Stoma site haemorrhage [Unknown]
  - Stoma site discharge [Not Recovered/Not Resolved]
  - Skin irritation [Recovering/Resolving]
  - Device connection issue [Not Recovered/Not Resolved]
  - Dysphonia [Not Recovered/Not Resolved]
  - Stoma site hypergranulation [Not Recovered/Not Resolved]
  - Gait disturbance [Recovering/Resolving]
  - General physical health deterioration [Unknown]
  - Dyskinesia [Unknown]

NARRATIVE: CASE EVENT DATE: 201601
